FAERS Safety Report 22379512 (Version 1)
Quarter: 2023Q2

REPORT INFORMATION
  Report Type: Spontaneous
  Country: FR (occurrence: FR)
  Receive Date: 20230529
  Receipt Date: 20230529
  Transmission Date: 20230721
  Serious: Yes (Other)
  Sender: FDA-Public Use
  Company Number: FR-CELLTRION INC.-2023FR010772

PATIENT

DRUGS (4)
  1. TRASTUZUMAB [Suspect]
     Active Substance: TRASTUZUMAB
     Indication: Breast cancer
     Dosage: UNK
  2. TUCATINIB [Suspect]
     Active Substance: TUCATINIB
     Indication: Breast cancer
  3. CAPECITABINE [Suspect]
     Active Substance: CAPECITABINE
     Indication: Breast cancer
  4. FAM-TRASTUZUMAB DERUXTECAN-NXKI [Concomitant]
     Active Substance: FAM-TRASTUZUMAB DERUXTECAN-NXKI
     Indication: Metastases to central nervous system
     Dosage: 5.4 MG/KG, EVERY 3 WEEKS

REACTIONS (2)
  - Metastases to central nervous system [Unknown]
  - Disease progression [Unknown]
